FAERS Safety Report 10736784 (Version 1)
Quarter: 2015Q1

REPORT INFORMATION
  Report Type: Spontaneous
  Country: US (occurrence: US)
  Receive Date: 20150126
  Receipt Date: 20150126
  Transmission Date: 20150721
  Serious: No
  Sender: FDA-Public Use
  Company Number: US-PFIZER INC-2015025610

PATIENT
  Age: 29 Year
  Sex: Female
  Weight: 64 kg

DRUGS (2)
  1. ADVIL [Suspect]
     Active Substance: IBUPROFEN
     Indication: TOOTHACHE
     Dosage: 1-2 CAPSULES OF 200MG, EVERY 4-6 HOURS
     Route: 048
     Dates: start: 20150114
  2. AMOXICILLIN. [Concomitant]
     Active Substance: AMOXICILLIN
     Indication: TOOTH DISORDER

REACTIONS (3)
  - Dyspnoea [Not Recovered/Not Resolved]
  - Overdose [Unknown]
  - Tremor [Unknown]

NARRATIVE: CASE EVENT DATE: 201501
